FAERS Safety Report 5258963-0 (Version None)
Quarter: 2007Q1

REPORT INFORMATION
  Report Type: 
  Country: None (occurrence: None)
  Receive Date: 20070308
  Receipt Date: 20070226
  Transmission Date: 20070707
  Serious: Yes (Death)
  Sender: FDA-Public Use
  Company Number: JP-ROCHE-484921

PATIENT
  Age: 25 Year
  Sex: Male

DRUGS (4)
  1. TAMIFLU [Suspect]
     Indication: INFLUENZA
     Route: 048
     Dates: start: 20070201, end: 20070205
  2. ZITHROMAC [Concomitant]
     Route: 048
  3. PL [Concomitant]
     Route: 048
  4. LOXONIN [Concomitant]
     Route: 048

REACTIONS (1)
  - DIARRHOEA [None]
